FAERS Safety Report 4471553-2 (Version None)
Quarter: 2004Q4

REPORT INFORMATION
  Report Type: 
  Country: None (occurrence: None)
  Receive Date: 20041006
  Receipt Date: 20040922
  Transmission Date: 20050328
  Serious: Yes (Hospitalization)
  Sender: FDA-Public Use
  Company Number: 205245

PATIENT
  Sex: Female

DRUGS (5)
  1. AVONEX [Suspect]
     Indication: MULTIPLE SCLEROSIS
     Dosage: 30 MCG QW, IM
     Route: 030
     Dates: start: 19960101
  2. AVONEX [Suspect]
     Indication: MULTIPLE SCLEROSIS
     Dosage: 30 MCG QW, IM
     Route: 030
  3. NEURONTIN [Concomitant]
  4. BACLOFEN [Concomitant]
  5. MULTI-VITAMINS [Concomitant]

REACTIONS (7)
  - ARTHRALGIA [None]
  - CHILLS [None]
  - HEADACHE [None]
  - INFLUENZA LIKE ILLNESS [None]
  - OSTEOARTHRITIS [None]
  - PYREXIA [None]
  - STRESS SYMPTOMS [None]
